FAERS Safety Report 21186337 (Version 1)
Quarter: 2022Q3

REPORT INFORMATION
  Report Type: Report from Study
  Country: CO (occurrence: CO)
  Receive Date: 20220808
  Receipt Date: 20220808
  Transmission Date: 20221026
  Serious: Yes (Hospitalization)
  Sender: FDA-Public Use
  Company Number: CO-ABBVIE-22K-036-4494477-00

PATIENT
  Sex: Male
  Weight: 76 kg

DRUGS (3)
  1. HUMIRA [Suspect]
     Active Substance: ADALIMUMAB
     Indication: Rheumatoid arthritis
     Route: 058
     Dates: end: 20220716
  2. HUMIRA [Suspect]
     Active Substance: ADALIMUMAB
     Indication: Product used for unknown indication
     Route: 058
     Dates: start: 20140828
  3. FLUOXETINE [Concomitant]
     Active Substance: FLUOXETINE HYDROCHLORIDE
     Indication: Anxiety disorder
     Route: 048

REACTIONS (13)
  - Paralysis [Recovering/Resolving]
  - Blood electrolytes decreased [Recovering/Resolving]
  - Blood electrolytes decreased [Recovered/Resolved]
  - Gastritis [Recovered/Resolved]
  - Gastritis [Not Recovered/Not Resolved]
  - Stress [Not Recovered/Not Resolved]
  - Blood sodium decreased [Not Recovered/Not Resolved]
  - Burning sensation [Not Recovered/Not Resolved]
  - Tremor [Not Recovered/Not Resolved]
  - Urinary tract infection [Recovering/Resolving]
  - Arrhythmia [Recovering/Resolving]
  - Feeling of despair [Not Recovered/Not Resolved]
  - Unevaluable event [Not Recovered/Not Resolved]

NARRATIVE: CASE EVENT DATE: 20150101
